FAERS Safety Report 6543498-5 (Version None)
Quarter: 2010Q1

REPORT INFORMATION
  Report Type: 
  Country: None (occurrence: None)
  Receive Date: 20100120
  Receipt Date: 20100115
  Transmission Date: 20100710
  Serious: Yes (Hospitalization)
  Sender: FDA-Public Use
  Company Number: B0614269A

PATIENT
  Age: 3 Year
  Sex: Male

DRUGS (1)
  1. ALKERAN [Suspect]
     Indication: DRUG USE FOR UNKNOWN INDICATION
     Route: 042

REACTIONS (4)
  - ANAPHYLACTIC REACTION [None]
  - CONVULSION [None]
  - MUCOUS MEMBRANE DISORDER [None]
  - SHOCK [None]
